FAERS Safety Report 10103127 (Version 1)
Quarter: 2014Q2

REPORT INFORMATION
  Report Type: Spontaneous
  Country: US (occurrence: US)
  Receive Date: 20140424
  Receipt Date: 20140424
  Transmission Date: 20141212
  Serious: No
  Sender: FDA-Public Use
  Company Number: US-BRISTOL-MYERS SQUIBB COMPANY-20107850

PATIENT
  Age: 78 Year
  Sex: Female
  Weight: 73.47 kg

DRUGS (4)
  1. ELIQUIS [Suspect]
  2. LISINOPRIL [Concomitant]
  3. ATENOLOL [Concomitant]
  4. LUMIGAN [Concomitant]
     Indication: GLAUCOMA

REACTIONS (2)
  - Intentional overdose [Unknown]
  - Feeling abnormal [Unknown]
